FAERS Safety Report 10196304 (Version 2)
Quarter: 2014Q2

REPORT INFORMATION
  Report Type: Spontaneous
  Country: US (occurrence: None)
  Receive Date: 20140522
  Receipt Date: 20140527
  Transmission Date: 20141212
  Serious: Yes (Life-Threatening, Hospitalization, Other)
  Sender: FDA-Public Use
  Company Number: ADR-2014-00842

PATIENT
  Age: 66 Year
  Sex: Male

DRUGS (1)
  1. LIORESAL INTRATHECAL [Suspect]
     Indication: MUSCLE SPASTICITY
     Dosage: 25 MCG/DAY

REACTIONS (7)
  - Injury [None]
  - Hydrocephalus [None]
  - White blood cell count increased [None]
  - Malaise [None]
  - Dengue fever [None]
  - Intracranial pressure increased [None]
  - Cerebral haemorrhage [None]
